FAERS Safety Report 8286522-4 (Version None)
Quarter: 2012Q2

REPORT INFORMATION
  Report Type: 
  Country: None (occurrence: None)
  Receive Date: 20120416
  Receipt Date: 20120410
  Transmission Date: 20120825
  Serious: Yes (Hospitalization)
  Sender: FDA-Public Use
  Company Number: IT-PFIZER INC-2012089974

PATIENT
  Age: 48 Year
  Sex: Male

DRUGS (2)
  1. XANAX [Suspect]
     Indication: INSOMNIA
     Dosage: 10 ML, TOTAL DOSE
     Route: 048
     Dates: start: 20111223, end: 20111223
  2. TRIAZOLAM [Suspect]
     Indication: INSOMNIA
     Dosage: 30 GTT, TOTAL DOSE
     Route: 048
     Dates: start: 20111223, end: 20111223

REACTIONS (1)
  - SOPOR [None]
